FAERS Safety Report 10154423 (Version 1)
Quarter: 2014Q2

REPORT INFORMATION
  Report Type: Spontaneous
  Country: US (occurrence: US)
  Receive Date: 20140506
  Receipt Date: 20140506
  Transmission Date: 20141212
  Serious: No
  Sender: FDA-Public Use
  Company Number: US-PFIZER INC-2014121323

PATIENT
  Age: 46 Year
  Sex: Male
  Weight: 80.73 kg

DRUGS (1)
  1. CHANTIX [Suspect]
     Indication: SMOKING CESSATION THERAPY
     Dosage: UNK

REACTIONS (5)
  - Tooth disorder [Unknown]
  - Oral disorder [Unknown]
  - Bone loss [Unknown]
  - Oral discomfort [Unknown]
  - Device failure [Unknown]
